FAERS Safety Report 8158027-2 (Version None)
Quarter: 2012Q1

REPORT INFORMATION
  Report Type: 
  Country: None (occurrence: None)
  Receive Date: 20120222
  Receipt Date: 20120214
  Transmission Date: 20120608
  Serious: Yes (Other)
  Sender: FDA-Public Use
  Company Number: PHEH2012US003875

PATIENT
  Sex: Female

DRUGS (4)
  1. LOTREL [Suspect]
  2. SIMVASTATIN [Concomitant]
     Dosage: 20 MG TABLET ONE EVERY OTHER DAY
  3. ALENDRONATE SODIUM [Concomitant]
     Dosage: 70 MG, QW
  4. NAMENDA [Concomitant]
     Dosage: 10 MG

REACTIONS (2)
  - AMNESIA [None]
  - CONVULSION [None]
